FAERS Safety Report 5433844-8 (Version None)
Quarter: 2007Q3

REPORT INFORMATION
  Report Type: 
  Country: None (occurrence: None)
  Receive Date: 20070831
  Receipt Date: 20070829
  Transmission Date: 20080115
  Serious: Yes (Hospitalization)
  Sender: FDA-Public Use
  Company Number: US-BRISTOL-MYERS SQUIBB COMPANY-13892666

PATIENT
  Age: 84 Year
  Sex: Female
  Weight: 82 kg

DRUGS (9)
  1. COUMADIN [Suspect]
     Indication: THROMBOSIS
     Dosage: 3.5 MG DAILY 4 TIMES A WEEK
  2. COUMADIN [Suspect]
     Dosage: 3.5 MG DAILY 4 TIMES A WEEK
  3. AVAPRO [Concomitant]
     Route: 048
  4. GLUCOVANCE [Concomitant]
     Route: 048
  5. GLUCOVANCE [Concomitant]
     Route: 048
  6. LASIX [Concomitant]
     Route: 048
  7. ATENOLOL [Concomitant]
  8. LANTUS [Concomitant]
     Route: 058
  9. AGGRENOX [Concomitant]

REACTIONS (5)
  - ABDOMINAL PAIN UPPER [None]
  - CEREBROVASCULAR ACCIDENT [None]
  - DEEP VEIN THROMBOSIS [None]
  - HAEMORRHAGE [None]
  - INTERNATIONAL NORMALISED RATIO FLUCTUATION [None]
